FAERS Safety Report 4354586-6 (Version None)
Quarter: 2004Q2

REPORT INFORMATION
  Report Type: 
  Country: None (occurrence: None)
  Receive Date: 20040504
  Receipt Date: 20040504
  Transmission Date: 20050107
  Serious: Yes (Hospitalization)
  Sender: FDA-Public Use
  Company Number: None

PATIENT
  Sex: Male
  Weight: 95.2554 kg

DRUGS (24)
  1. GATIFLOXACIN [Suspect]
     Indication: ANTIBACTERIAL PROPHYLAXIS
     Dosage: 200MG DAILY ORAL
     Route: 048
     Dates: start: 20040211, end: 20040213
  2. GATIFLOXACIN [Suspect]
     Indication: CYSTOSCOPY
     Dosage: 200MG DAILY ORAL
     Route: 048
     Dates: start: 20040211, end: 20040213
  3. ACETAMINOPHEN W/ CODEINE [Concomitant]
  4. GATIFLOXACIN [Concomitant]
  5. KETOCONAZOLE [Concomitant]
  6. DIGOXIN [Concomitant]
  7. LANOXIN [Concomitant]
  8. FERROUS SULFATE TAB [Concomitant]
  9. FINASTERIDE [Concomitant]
  10. FUROSEMIDE [Concomitant]
  11. IRBESARTAN [Concomitant]
  12. MINOXIDIL [Concomitant]
  13. MULTI-VITAMIN [Concomitant]
  14. ALLOPURINOL TAB [Concomitant]
  15. FLUNISOLIDE [Concomitant]
  16. FLUOCINOLONE ACETONIDE [Concomitant]
  17. HYDROCORTISONE [Concomitant]
  18. METOPROLOL TARTRATE [Concomitant]
  19. DOCUSATE [Concomitant]
  20. FELODIPINE [Concomitant]
  21. POTASSIUM CHLORIDE [Concomitant]
  22. SIMVASTATIN [Concomitant]
  23. TERAZOSIN HCL [Concomitant]
  24. COUMADIN [Concomitant]

REACTIONS (2)
  - INTERNATIONAL NORMALISED RATIO DECREASED [None]
  - INTERNATIONAL NORMALISED RATIO INCREASED [None]
